FAERS Safety Report 8464733-2 (Version None)
Quarter: 2012Q2

REPORT INFORMATION
  Report Type: 
  Country: None (occurrence: None)
  Receive Date: 20120626
  Receipt Date: 20120618
  Transmission Date: 20120825
  Serious: No
  Sender: FDA-Public Use
  Company Number: US-PFIZER INC-2012147418

PATIENT
  Age: 40 Year
  Sex: Male

DRUGS (1)
  1. PRISTIQ [Suspect]
     Indication: MAJOR DEPRESSION
     Dosage: 150 MG, UNK

REACTIONS (1)
  - TINNITUS [None]
